FAERS Safety Report 18169267 (Version 2)
Quarter: 2021Q3

REPORT INFORMATION
  Report Type: Spontaneous
  Country: CA (occurrence: CA)
  Receive Date: 20200818
  Receipt Date: 20210721
  Transmission Date: 20211014
  Serious: Yes (Life-Threatening, Hospitalization)
  Sender: FDA-Public Use
  Company Number: CA-ROCHE-2660068

PATIENT
  Age: 78 Year
  Sex: Female

DRUGS (6)
  1. TNKASE [Suspect]
     Active Substance: TENECTEPLASE
     Indication: ACUTE MYOCARDIAL INFARCTION
     Route: 042
  2. DOBUTAMINE [Concomitant]
     Active Substance: DOBUTAMINE HYDROCHLORIDE
     Indication: ATRIOVENTRICULAR BLOCK
     Route: 065
  3. TNKASE [Suspect]
     Active Substance: TENECTEPLASE
     Route: 042
  4. CLOPIDOGREL [Suspect]
     Active Substance: CLOPIDOGREL BISULFATE
     Indication: ACUTE MYOCARDIAL INFARCTION
     Route: 065
  5. ENOXAPARIN [Suspect]
     Active Substance: ENOXAPARIN
     Indication: ACUTE MYOCARDIAL INFARCTION
     Route: 065
  6. ASPIRIN. [Suspect]
     Active Substance: ASPIRIN
     Indication: ACUTE MYOCARDIAL INFARCTION
     Route: 065

REACTIONS (6)
  - Labelled drug-drug interaction medication error [Unknown]
  - Epistaxis [Unknown]
  - Pharyngeal disorder [Unknown]
  - Stridor [Unknown]
  - Haemorrhage [Unknown]
  - Spinal epidural haematoma [Unknown]
